FAERS Safety Report 15395956 (Version 1)
Quarter: 2018Q3

REPORT INFORMATION
  Report Type: Spontaneous
  Country: US (occurrence: US)
  Receive Date: 20180918
  Receipt Date: 20180918
  Transmission Date: 20181010
  Serious: No
  Sender: FDA-Public Use
  Company Number: US-GLAXOSMITHKLINE-US2018167781

PATIENT
  Sex: Female

DRUGS (1)
  1. NICODERM CQ [Suspect]
     Active Substance: NICOTINE
     Indication: SMOKING CESSATION THERAPY
     Dosage: 14 MG, UNK
     Dates: start: 2017

REACTIONS (8)
  - Application site swelling [Unknown]
  - Dermatitis contact [Unknown]
  - Drug intolerance [Unknown]
  - Application site urticaria [Unknown]
  - Application site haemorrhage [Unknown]
  - Application site vesicles [Unknown]
  - Swelling [Unknown]
  - Urticaria [Unknown]
